FAERS Safety Report 13825508 (Version 1)
Quarter: 2017Q3

REPORT INFORMATION
  Report Type: Spontaneous
  Country: GB (occurrence: GB)
  Receive Date: 20170802
  Receipt Date: 20170802
  Transmission Date: 20171127
  Serious: Yes (Life-Threatening, Hospitalization, Disabling)
  Sender: FDA-Public Use
  Company Number: GB-TEVA-771699ACC

PATIENT
  Age: 91 Year
  Sex: Female
  Weight: 80 kg

DRUGS (18)
  1. MELATONIN [Concomitant]
     Active Substance: MELATONIN
  2. HEPARIN [Concomitant]
     Active Substance: HEPARIN SODIUM
  3. BISOPROLOL FUMARATE. [Concomitant]
     Active Substance: BISOPROLOL FUMARATE
  4. CALCICHEW D3 [Concomitant]
     Active Substance: CALCIUM\CHOLECALCIFEROL
  5. CANDESARTAN. [Concomitant]
     Active Substance: CANDESARTAN
  6. SENNA [Concomitant]
     Active Substance: SENNA LEAF\SENNOSIDES\SENNOSIDES A AND B
  7. SERTRALINE [Concomitant]
     Active Substance: SERTRALINE HYDROCHLORIDE
  8. CLOPIDOGREL [Concomitant]
     Active Substance: CLOPIDOGREL BISULFATE
  9. FLUCLOXACILLIN [Concomitant]
     Active Substance: FLUCLOXACILLIN
  10. TRIMETHOPRIM. [Suspect]
     Active Substance: TRIMETHOPRIM
     Indication: ESCHERICHIA URINARY TRACT INFECTION
     Dosage: 400 MILLIGRAM DAILY;
     Route: 048
     Dates: start: 20170105, end: 20170107
  11. DOSULEPIN HYDROCHLORIDE [Concomitant]
     Active Substance: DOTHIEPIN HYDROCHLORIDE
  12. FUROSEMIDE. [Concomitant]
     Active Substance: FUROSEMIDE
  13. OMEPRAZOLE. [Concomitant]
     Active Substance: OMEPRAZOLE
  14. MORPHINE [Concomitant]
     Active Substance: MORPHINE
  15. IBANDRONIC ACID. [Concomitant]
     Active Substance: IBANDRONIC ACID
  16. ATORVASTATIN CALCIUM. [Concomitant]
     Active Substance: ATORVASTATIN CALCIUM
  17. MOVICOL [Concomitant]
     Active Substance: POLYETHYLENE GLYCOL 3350\POTASSIUM CHLORIDE\SODIUM BICARBONATE\SODIUM CHLORIDE
  18. PARACETAMOL [Concomitant]
     Active Substance: ACETAMINOPHEN

REACTIONS (4)
  - Pain [Recovering/Resolving]
  - Toxic epidermal necrolysis [Recovered/Resolved with Sequelae]
  - Rash vesicular [Recovering/Resolving]
  - Pruritus [Recovering/Resolving]

NARRATIVE: CASE EVENT DATE: 20170107
